FAERS Safety Report 7028144-9 (Version None)
Quarter: 2010Q4

REPORT INFORMATION
  Report Type: 
  Country: None (occurrence: None)
  Receive Date: 20101005
  Receipt Date: 20101001
  Transmission Date: 20110411
  Serious: Yes (Hospitalization)
  Sender: FDA-Public Use
  Company Number: FR-BRISTOL-MYERS SQUIBB COMPANY-15300437

PATIENT
  Age: 52 Year
  Sex: Male
  Weight: 69 kg

DRUGS (3)
  1. ERBITUX [Suspect]
     Indication: HEAD AND NECK CANCER
     Route: 042
     Dates: start: 20100625, end: 20100625
  2. SOLU-MEDROL [Concomitant]
     Indication: PREMEDICATION
     Dosage: SOL FOR INJ
     Route: 042
     Dates: start: 20100625
  3. POLARAMINE [Concomitant]
     Indication: PREMEDICATION
     Dosage: 2 DF
     Route: 042
     Dates: start: 20100625

REACTIONS (3)
  - DYSPNOEA [None]
  - OEDEMA [None]
  - URTICARIA [None]
